FAERS Safety Report 7520708-9 (Version None)
Quarter: 2011Q2

REPORT INFORMATION
  Report Type: 
  Country: None (occurrence: None)
  Receive Date: 20110603
  Receipt Date: 20110530
  Transmission Date: 20111010
  Serious: Yes (Hospitalization)
  Sender: FDA-Public Use
  Company Number: FR-BRISTOL-MYERS SQUIBB COMPANY-15738131

PATIENT
  Age: 47 Year
  Sex: Male

DRUGS (2)
  1. TERCIAN [Concomitant]
  2. ABILIFY [Suspect]
     Dosage: STOPPED IT FOR ONE MONTH AND RESUMED.DOSE INCREASED TO 30MG

REACTIONS (5)
  - BALANCE DISORDER [None]
  - PANIC DISORDER [None]
  - GAIT DISTURBANCE [None]
  - MUSCULAR WEAKNESS [None]
  - VERTIGO [None]
